FAERS Safety Report 5119758-1 (Version None)
Quarter: 2006Q4

REPORT INFORMATION
  Report Type: 
  Country: None (occurrence: None)
  Receive Date: 20061003
  Receipt Date: 20060502
  Transmission Date: 20070319
  Serious: Yes (Death, Hospitalization, Other)
  Sender: FDA-Public Use
  Company Number: PHMT2006CA01165

PATIENT
  Age: 61 Year
  Sex: Male

DRUGS (2)
  1. GLEEVEC [Suspect]
     Indication: CHRONIC MYELOID LEUKAEMIA
  2. LEVAQUIN [Concomitant]
     Dosage: 500 MG, QD
     Dates: start: 20060421, end: 20060426

REACTIONS (30)
  - ABDOMINAL PAIN [None]
  - ABSCESS [None]
  - ACUTE MYELOID LEUKAEMIA [None]
  - ASPIRATION BONE MARROW [None]
  - BLAST CELL COUNT INCREASED [None]
  - BLAST CRISIS IN MYELOGENOUS LEUKAEMIA [None]
  - BONE MARROW FAILURE [None]
  - CHEST PAIN [None]
  - CHROMOSOME ABNORMALITY [None]
  - COUGH [None]
  - CYTOGENETIC ANALYSIS [None]
  - DEHYDRATION [None]
  - DEPRESSED MOOD [None]
  - DIVERTICULUM [None]
  - GRANULOCYTES ABNORMAL [None]
  - HAEMOGLOBIN DECREASED [None]
  - MALAISE [None]
  - NEUTROPENIA [None]
  - NEUTROPHIL COUNT DECREASED [None]
  - PANCYTOPENIA [None]
  - PLATELET COUNT DECREASED [None]
  - PNEUMONIA [None]
  - PYREXIA [None]
  - SPLENIC INFARCTION [None]
  - SPLENOMEGALY [None]
  - STOMATITIS [None]
  - SUDDEN DEATH [None]
  - THROMBOCYTOPENIA [None]
  - URINARY TRACT INFECTION STAPHYLOCOCCAL [None]
  - WHITE BLOOD CELL COUNT DECREASED [None]
